FAERS Safety Report 9526410 (Version 2)
Quarter: 2013Q3

REPORT INFORMATION
  Report Type: Spontaneous
  Country: US (occurrence: US)
  Receive Date: 20130916
  Receipt Date: 20130918
  Transmission Date: 20140515
  Serious: Yes (Other)
  Sender: FDA-Public Use
  Company Number: US-TEVA-432156USA

PATIENT
  Age: 27 Year
  Sex: Female

DRUGS (4)
  1. PARAGARD 380A [Suspect]
     Indication: CONTRACEPTION
     Route: 015
     Dates: start: 20100120, end: 20130705
  2. WARFARIN SODIUM [Concomitant]
  3. MACROGOL [Concomitant]
  4. PROCATEROL HYDROCHLORIDE [Concomitant]

REACTIONS (1)
  - Device dislocation [Recovered/Resolved]
